FAERS Safety Report 5220202-4 (Version None)
Quarter: 2007Q1

REPORT INFORMATION
  Report Type: 
  Country: None (occurrence: None)
  Receive Date: 20061201
  Receipt Date: 20060413
  Transmission Date: 20070707
  Serious: Yes (Other)
  Sender: FDA-Public Use
  Company Number: PHEH2006US04917

PATIENT
  Age: 37 Year
  Sex: Female

DRUGS (2)
  1. LAMISIL [Suspect]
     Dosage: ORAL
     Route: 048
     Dates: start: 20060220
  2. SEPTRA DS [Suspect]
     Dosage: BID, ORAL
     Route: 048

REACTIONS (4)
  - ALANINE AMINOTRANSFERASE INCREASED [None]
  - ASPARTATE AMINOTRANSFERASE INCREASED [None]
  - HEPATIC ENZYME INCREASED [None]
  - JAUNDICE [None]
